FAERS Safety Report 7731683-6 (Version None)
Quarter: 2011Q3

REPORT INFORMATION
  Report Type: 
  Country: None (occurrence: None)
  Receive Date: 20110906
  Receipt Date: 20110829
  Transmission Date: 20111222
  Serious: Yes (Hospitalization)
  Sender: FDA-Public Use
  Company Number: FR-ABBOTT-11P-056-0851046-00

PATIENT
  Sex: Male

DRUGS (8)
  1. PERINDOPRIL ERBUMINE [Suspect]
     Indication: MYOCARDIAL ISCHAEMIA
     Dosage: DAILY DOSE 2.5 MG
     Route: 048
     Dates: start: 20110501, end: 20110723
  2. EUPANTOL 40 MG, COMPRIME GASTRO-RESISTANT [Suspect]
     Indication: PRODUCT USED FOR UNKNOWN INDICATION
     Dosage: DAILY DOSE 40 MG
     Route: 048
     Dates: start: 20110720, end: 20110723
  3. AMLODIPINE [Suspect]
     Indication: MYOCARDIAL ISCHAEMIA
     Dosage: DAILY DOSE 5 MG
     Route: 048
     Dates: start: 20110501, end: 20110723
  4. ASPIRIN [Suspect]
     Indication: MYOCARDIAL ISCHAEMIA
     Dosage: DAILY DOSE 75 MG
     Route: 048
     Dates: start: 20110501, end: 20110723
  5. BISOPROLOL FUMARATE [Suspect]
     Indication: MYOCARDIAL ISCHAEMIA
     Dosage: DAILY DOSE 10 MG
     Route: 048
     Dates: start: 20110501, end: 20110723
  6. SIMVASTATIN [Suspect]
     Indication: DYSLIPIDAEMIA
     Dosage: DAILY DOSE 40 MG
     Route: 048
     Dates: start: 20110501
  7. CLOPIDOGREL [Suspect]
     Indication: MYOCARDIAL ISCHAEMIA
     Dosage: DAILY DOSE 75 MG
     Route: 048
     Dates: start: 20110501, end: 20110723
  8. LEXOMIL [Suspect]
     Indication: PRODUCT USED FOR UNKNOWN INDICATION
     Route: 048
     Dates: start: 20110720, end: 20110723

REACTIONS (2)
  - THROMBOCYTOPENIC PURPURA [None]
  - MOUTH HAEMORRHAGE [None]
